FAERS Safety Report 7511143-8 (Version None)
Quarter: 2011Q2

REPORT INFORMATION
  Report Type: 
  Country: None (occurrence: None)
  Receive Date: 20110531
  Receipt Date: 20110518
  Transmission Date: 20111010
  Serious: Yes (Other)
  Sender: FDA-Public Use
  Company Number: US-JNJFOC-20110509087

PATIENT
  Sex: Female
  Weight: 82.56 kg

DRUGS (6)
  1. DURAGESIC-100 [Suspect]
     Indication: BACK PAIN
     Route: 062
     Dates: start: 20100101
  2. CYCLOBENZAPRINE [Concomitant]
     Indication: FIBROMYALGIA
     Route: 048
     Dates: start: 19960101
  3. ALLERGY MEDICATIONS UNSPECIFIED [Concomitant]
     Indication: MULTIPLE ALLERGIES
     Route: 048
     Dates: start: 20010101
  4. EFFEXOR [Concomitant]
     Indication: DEPRESSION
     Route: 048
     Dates: start: 20010101
  5. DURAGESIC-100 [Suspect]
     Route: 062
     Dates: start: 20060101, end: 20100101
  6. ALPRAZOLAM [Concomitant]
     Indication: ANXIETY
     Route: 048
     Dates: start: 20060101

REACTIONS (6)
  - WRONG TECHNIQUE IN DRUG USAGE PROCESS [None]
  - ABDOMINAL DISCOMFORT [None]
  - COLD SWEAT [None]
  - PRODUCT ADHESION ISSUE [None]
  - DIABETES MELLITUS [None]
  - DRUG INEFFECTIVE [None]
